FAERS Safety Report 23511106 (Version 1)
Quarter: 2024Q1

REPORT INFORMATION
  Report Type: Spontaneous
  Country: CN (occurrence: CN)
  Receive Date: 20240212
  Receipt Date: 20240212
  Transmission Date: 20240409
  Serious: Yes (Hospitalization, Other)
  Sender: FDA-Public Use
  Company Number: CN-HALEON-CNCH2024APC007430

PATIENT

DRUGS (1)
  1. IBUPROFEN [Suspect]
     Active Substance: IBUPROFEN
     Indication: Headache
     Dosage: 1 DF

REACTIONS (13)
  - Hepatic failure [Recovered/Resolved]
  - Chromaturia [Recovered/Resolved]
  - Decreased appetite [Recovered/Resolved]
  - Skin discolouration [Recovered/Resolved]
  - Diarrhoea [Recovered/Resolved]
  - Gallbladder enlargement [Recovered/Resolved]
  - Deformity thorax [Recovered/Resolved]
  - Muscle tightness [Recovered/Resolved]
  - Gallbladder polyp [Recovered/Resolved]
  - Splenomegaly [Recovered/Resolved]
  - Ventricular hypertrophy [Recovered/Resolved]
  - Angiopathy [Recovered/Resolved]
  - Hepatic function abnormal [Recovered/Resolved]
